FAERS Safety Report 6762027-4 (Version None)
Quarter: 2010Q2

REPORT INFORMATION
  Report Type: 
  Country: None (occurrence: None)
  Receive Date: 20100609
  Receipt Date: 20100603
  Transmission Date: 20101027
  Serious: Yes (Other)
  Sender: FDA-Public Use
  Company Number: GB-BRISTOL-MYERS SQUIBB COMPANY-14478119

PATIENT
  Age: 28 Year
  Sex: Female
  Weight: 104 kg

DRUGS (4)
  1. EFAVIRENZ [Suspect]
     Indication: HIV INFECTION
     Dosage: AT NIGHT ONLY
     Route: 048
     Dates: start: 20071009, end: 20071011
  2. TRUVADA [Suspect]
     Indication: HIV INFECTION
     Dosage: 1DF=1(UNITS NOT SPECIFIED).TAKEN FROM 09-11OCT2007.
     Route: 048
     Dates: start: 20071024
  3. KALETRA [Suspect]
     Indication: HIV INFECTION
     Route: 048
     Dates: start: 20071012
  4. COMBIVIR [Suspect]
     Indication: HIV INFECTION
     Dosage: 1DF=1(UNITS NOT SPECIFIED).
     Route: 048
     Dates: start: 20071012, end: 20071022

REACTIONS (3)
  - CAESAREAN SECTION [None]
  - NORMAL NEWBORN [None]
  - PREGNANCY [None]
